FAERS Safety Report 11301514 (Version 1)
Quarter: 2015Q3

REPORT INFORMATION
  Report Type: Spontaneous
  Country: US (occurrence: US)
  Receive Date: 20150722
  Receipt Date: 20150722
  Transmission Date: 20151125
  Serious: No
  Sender: FDA-Public Use
  Company Number: US-ELI_LILLY_AND_COMPANY-US201001002873

PATIENT
  Age: 58 Year
  Sex: Female

DRUGS (3)
  1. CORTISOL [Concomitant]
     Active Substance: HYDROCORTISONE
  2. HUMATROPE [Suspect]
     Active Substance: SOMATROPIN
     Dosage: 0.2 MG, DAILY (1/D)
     Dates: start: 200912
  3. CALCITROL [Concomitant]
     Active Substance: CALCITRIOL

REACTIONS (2)
  - Drug dose omission [Not Recovered/Not Resolved]
  - Malaise [Not Recovered/Not Resolved]

NARRATIVE: CASE EVENT DATE: 200912
